FAERS Safety Report 20335580 (Version 1)
Quarter: 2022Q1

REPORT INFORMATION
  Report Type: Spontaneous
  Country: US (occurrence: None)
  Receive Date: 20220113
  Receipt Date: 20220113
  Transmission Date: 20220423
  Serious: No
  Sender: FDA-Public Use
  Company Number: None

PATIENT
  Age: 72 Year
  Sex: Male

DRUGS (1)
  1. PROLIA [Suspect]
     Active Substance: DENOSUMAB

REACTIONS (4)
  - Alopecia [None]
  - Pain in jaw [None]
  - Bone pain [None]
  - Urinary tract infection [None]

NARRATIVE: CASE EVENT DATE: 20210801
